FAERS Safety Report 11354477 (Version 1)
Quarter: 2015Q3

REPORT INFORMATION
  Report Type: Spontaneous
  Country: US (occurrence: US)
  Receive Date: 20150807
  Receipt Date: 20150807
  Transmission Date: 20151125
  Serious: No
  Sender: FDA-Public Use
  Company Number: US-JNJFOC-20150300964

PATIENT
  Age: 39 Year
  Sex: Female
  Weight: 67.59 kg

DRUGS (2)
  1. WOMENS ROGAINE UNSCENTED [Suspect]
     Active Substance: MINOXIDIL
     Indication: ALOPECIA
     Dosage: HALF A CAPFUL
     Route: 061
     Dates: end: 20150226
  2. WOMENS ROGAINE UNSCENTED [Suspect]
     Active Substance: MINOXIDIL
     Route: 061

REACTIONS (4)
  - Eye swelling [Not Recovered/Not Resolved]
  - Fluid retention [Unknown]
  - Weight increased [Not Recovered/Not Resolved]
  - Headache [Not Recovered/Not Resolved]
